FAERS Safety Report 23882282 (Version 1)
Quarter: 2024Q2

REPORT INFORMATION
  Report Type: Report from Study
  Country: PR (occurrence: PR)
  Receive Date: 20240522
  Receipt Date: 20240522
  Transmission Date: 20240716
  Serious: Yes (Hospitalization, Other)
  Sender: FDA-Public Use
  Company Number: US-ABBVIE-5764113

PATIENT
  Age: 67 Year
  Sex: Female
  Weight: 63 kg

DRUGS (9)
  1. RINVOQ [Suspect]
     Active Substance: UPADACITINIB
     Indication: Rheumatoid arthritis
     Dosage: FORM STRENGTH: 15 MILLIGRAM
     Route: 048
     Dates: start: 20211027
  2. VITAMIN C [Concomitant]
     Active Substance: ASCORBIC ACID
     Indication: Vitamin supplementation
  3. VITAMIN D [Concomitant]
     Active Substance: VITAMIN D NOS
     Indication: Vitamin supplementation
  4. VITAMIN B12 [Concomitant]
     Active Substance: CYANOCOBALAMIN
     Indication: Vitamin supplementation
  5. SEPTRA [Concomitant]
     Active Substance: SULFAMETHOXAZOLE\TRIMETHOPRIM
     Indication: Post procedural complication
  6. DICLOFENAC POTASSIUM [Concomitant]
     Active Substance: DICLOFENAC POTASSIUM
     Indication: Hypertension
     Dosage: FORM STRENGTH: 50 MILLIGRAM
  7. PROLIA [Concomitant]
     Active Substance: DENOSUMAB
     Indication: Osteoporosis
     Dosage: SUBCUT SOL PREFIL SYR?FORM STRENGTH: 60 MILLIGRAM
  8. BENICAR [Concomitant]
     Active Substance: OLMESARTAN MEDOXOMIL
     Indication: Product used for unknown indication
     Route: 048
  9. ROSUVASTATIN CALCIUM [Concomitant]
     Active Substance: ROSUVASTATIN CALCIUM
     Indication: Blood cholesterol
     Dosage: FORM STRENGTH: 5 MILLIGRAM
     Route: 048

REACTIONS (7)
  - Gallbladder polyp [Recovered/Resolved]
  - Procedural pain [Recovered/Resolved]
  - Biliary colic [Recovered/Resolved]
  - Hepatitis A [Recovered/Resolved]
  - Diarrhoea [Recovered/Resolved]
  - Infection [Recovered/Resolved]
  - Gallbladder hypofunction [Unknown]

NARRATIVE: CASE EVENT DATE: 20231001
